FAERS Safety Report 6105416-3 (Version None)
Quarter: 2009Q1

REPORT INFORMATION
  Report Type: 
  Country: None (occurrence: None)
  Receive Date: 20090306
  Receipt Date: 20090303
  Transmission Date: 20090719
  Serious: Yes (Hospitalization)
  Sender: FDA-Public Use
  Company Number: DE-ASTRAZENECA-2009PK00729

PATIENT
  Age: 66 Year
  Sex: Male
  Weight: 78 kg

DRUGS (2)
  1. ATACAND D [Suspect]
     Indication: HYPERLIPIDAEMIA
     Dosage: 16/12,5 MG
     Route: 048
     Dates: start: 20070101, end: 20081022
  2. CORIFEO [Suspect]
     Indication: HYPERTENSION
     Route: 048
     Dates: start: 20070101, end: 20081022

REACTIONS (1)
  - SYNCOPE [None]
